FAERS Safety Report 5115667-2 (Version None)
Quarter: 2006Q3

REPORT INFORMATION
  Report Type: 
  Country: None (occurrence: None)
  Receive Date: 20060926
  Receipt Date: 20060926
  Transmission Date: 20061208
  Serious: Yes (Death, Hospitalization)
  Sender: FDA-Public Use
  Company Number: None

PATIENT
  Sex: Male
  Weight: 104.78 kg

DRUGS (4)
  1. CYCLOSPORINE [Suspect]
     Dosage: 2310 MG
  2. CYTARABINE [Suspect]
     Dosage: 3038 MG          SEE IMAGE
  3. DAUNORUBICIN HCL [Concomitant]
     Dosage: 294 MG          SEE IMAGE
  4. G-CSF (FILGRASTIM, AMGEN) [Suspect]
     Dosage: 480 MG

REACTIONS (10)
  - BACILLUS INFECTION [None]
  - BRAIN COMPRESSION [None]
  - BRAIN OEDEMA [None]
  - CEREBRAL HAEMORRHAGE [None]
  - DEPRESSED LEVEL OF CONSCIOUSNESS [None]
  - HYPOTENSION [None]
  - MULTI-ORGAN FAILURE [None]
  - PYREXIA [None]
  - RENAL FAILURE [None]
  - TUMOUR LYSIS SYNDROME [None]
